FAERS Safety Report 19065600 (Version 1)
Quarter: 2021Q1

REPORT INFORMATION
  Report Type: Spontaneous
  Country: BE (occurrence: BE)
  Receive Date: 20210327
  Receipt Date: 20210327
  Transmission Date: 20210420
  Serious: Yes (Other)
  Sender: FDA-Public Use
  Company Number: NVSC2021BE062776

PATIENT
  Age: 53 Year
  Sex: Female

DRUGS (3)
  1. GOSERELIN [Suspect]
     Active Substance: GOSERELIN
     Indication: BREAST CANCER FEMALE
     Dosage: UNK, DEPOT
     Route: 058
  2. RIBOCICLIB. [Suspect]
     Active Substance: RIBOCICLIB
     Indication: BREAST CANCER FEMALE
     Dosage: UNK
     Route: 065
  3. LETROZOL [Suspect]
     Active Substance: LETROZOLE
     Indication: BREAST CANCER FEMALE
     Dosage: UNK
     Route: 065

REACTIONS (15)
  - Metastases to lung [Unknown]
  - Sleep deficit [Unknown]
  - Hot flush [Unknown]
  - Tumour marker increased [Unknown]
  - Metastases to ovary [Unknown]
  - Disturbance in attention [Unknown]
  - Metastases to liver [Unknown]
  - Neutropenia [Unknown]
  - Stress [Unknown]
  - Cognitive disorder [Unknown]
  - Asthenia [Unknown]
  - Arthralgia [Unknown]
  - Metastases to bone [Unknown]
  - White blood cell count decreased [Unknown]
  - Sexual dysfunction [Unknown]
